FAERS Safety Report 4840032-2 (Version None)
Quarter: 2005Q4

REPORT INFORMATION
  Report Type: 
  Country: None (occurrence: None)
  Receive Date: 20051125
  Receipt Date: 20051111
  Transmission Date: 20060501
  Serious: Yes (Disabling, Other)
  Sender: FDA-Public Use
  Company Number: 2005RL000149

PATIENT
  Sex: Female

DRUGS (6)
  1. PROPAFENONE HCL [Suspect]
  2. DICLOFENAC [Concomitant]
  3. ESOMEPRAZOLE [Concomitant]
  4. ATORVASTATIN CALCIUM [Concomitant]
  5. AMITRIPTYLINE HCL [Concomitant]
  6. TIBOLONE [Concomitant]

REACTIONS (2)
  - HEPATITIS [None]
  - JAUNDICE CHOLESTATIC [None]
